FAERS Safety Report 10466607 (Version 1)
Quarter: 2014Q3

REPORT INFORMATION
  Report Type: Spontaneous
  Country: FR (occurrence: FR)
  Receive Date: 20140922
  Receipt Date: 20140922
  Transmission Date: 20150326
  Serious: Yes (Hospitalization)
  Sender: FDA-Public Use
  Company Number: FR-SA-2014SA127207

PATIENT
  Age: 56 Year
  Sex: Male

DRUGS (4)
  1. APROVEL [Suspect]
     Active Substance: IRBESARTAN
     Indication: INTENTIONAL OVERDOSE
     Dosage: DOSE : 10-30 TABLETS
     Route: 048
     Dates: start: 20140823, end: 20140823
  2. DUOPLAVIN [Suspect]
     Active Substance: ASPIRIN\CLOPIDOGREL
     Indication: INTENTIONAL OVERDOSE
     Route: 048
     Dates: start: 20140823, end: 20140823
  3. BISOPROLOL SALT NOT SPECIFIED [Suspect]
     Active Substance: BISOPROLOL
     Indication: INTENTIONAL OVERDOSE
     Route: 048
     Dates: start: 20140823, end: 20140823
  4. XANAX [Suspect]
     Active Substance: ALPRAZOLAM
     Indication: INTENTIONAL OVERDOSE
     Dosage: DOSE : 10-30 TABLETS
     Route: 048
     Dates: start: 20140823, end: 20140823

REACTIONS (1)
  - Confusional state [Recovered/Resolved]

NARRATIVE: CASE EVENT DATE: 20140823
